FAERS Safety Report 5705507-2 (Version None)
Quarter: 2008Q2

REPORT INFORMATION
  Report Type: 
  Country: None (occurrence: None)
  Receive Date: 20080411
  Receipt Date: 20080409
  Transmission Date: 20081010
  Serious: Yes (Death, Hospitalization)
  Sender: FDA-Public Use
  Company Number: TCI2008A01302

PATIENT
  Age: 79 Year
  Sex: Male

DRUGS (6)
  1. LANSOPRAZOLE [Suspect]
     Indication: GASTRIC ULCER
     Dosage: 30 MG (30 MG, 1 IN 1 D) PER ORAL
     Route: 048
     Dates: start: 20080215, end: 20080323
  2. LASIX [Concomitant]
  3. ASPIRIN [Concomitant]
  4. CRESTOR (ROSUVASTATIN CALCIUM) (TABLETS) [Concomitant]
  5. YUNASUPIN (SULBACTAM SODIUM) (INJECTION) [Concomitant]
  6. MEXIRATE (MEXILETINE HYDROCHLORIDE) (TABLETS) [Concomitant]

REACTIONS (1)
  - THROMBOCYTOPENIA [None]
